FAERS Safety Report 6277775-2 (Version None)
Quarter: 2009Q3

REPORT INFORMATION
  Report Type: 
  Country: None (occurrence: None)
  Receive Date: 20090720
  Receipt Date: 20090709
  Transmission Date: 20100115
  Serious: Yes (Other)
  Sender: FDA-Public Use
  Company Number: GXKR2009GB07884

PATIENT
  Age: 2 Year
  Sex: Female
  Weight: 13 kg

DRUGS (4)
  1. OMEPRAZOLE [Suspect]
     Indication: PROPHYLAXIS
     Dosage: 20 MG, (MATERNAL DOSE), TRANSMAMMARY
     Route: 063
     Dates: start: 20090604, end: 20090618
  2. ASPIRIN [Concomitant]
  3. LAMOTRIGINE [Concomitant]
  4. RANITIDINE [Concomitant]

REACTIONS (4)
  - DIARRHOEA [None]
  - DRUG EXPOSURE VIA BREAST MILK [None]
  - FAECES DISCOLOURED [None]
  - INTOXICATION BY BREAST FEEDING [None]
